FAERS Safety Report 6693352-3 (Version None)
Quarter: 2010Q2

REPORT INFORMATION
  Report Type: 
  Country: None (occurrence: None)
  Receive Date: 20100420
  Receipt Date: 20100405
  Transmission Date: 20101027
  Serious: Yes (Hospitalization)
  Sender: FDA-Public Use
  Company Number: DSU-2010-01429

PATIENT
  Sex: Male
  Weight: 86.1834 kg

DRUGS (4)
  1. BENICAR [Suspect]
     Indication: HYPERTENSION
     Dosage: 20 MG (20 MG,QD) PER ORAL ; 20 MG (20 MG,QD),PER ORAL
     Route: 048
     Dates: start: 20100331
  2. SYNTHROID       (LEVOTHYROXINE SODIUM) (LEVOTHYROXINE SODIUM) [Concomitant]
  3. LANTUS       (INSULIN GLARGINE) (INJECTION) (INSULIN GLARGINE) [Concomitant]
  4. AVANDAMET [Concomitant]

REACTIONS (12)
  - AORTIC DISSECTION [None]
  - BLOOD PRESSURE DECREASED [None]
  - CHRONIC OBSTRUCTIVE PULMONARY DISEASE [None]
  - COUGH [None]
  - DYSPNOEA [None]
  - FATIGUE [None]
  - FLUID RETENTION [None]
  - OEDEMA PERIPHERAL [None]
  - PNEUMONIA [None]
  - POST PROCEDURAL COMPLICATION [None]
  - RESPIRATORY TRACT INFECTION [None]
  - WEIGHT DECREASED [None]
